FAERS Safety Report 5944363-4 (Version None)
Quarter: 2008Q4

REPORT INFORMATION
  Report Type: 
  Country: None (occurrence: None)
  Receive Date: 20081106
  Receipt Date: 20081106
  Transmission Date: 20090506
  Serious: No
  Sender: FDA-Public Use
  Company Number: None

PATIENT
  Age: 42 Year
  Sex: Female
  Weight: 63.5036 kg

DRUGS (1)
  1. DIFLUCAN [Suspect]
     Indication: VULVOVAGINAL MYCOTIC INFECTION
     Dosage: 1 DAILY PO (DURATION: ONCE)
     Route: 048

REACTIONS (5)
  - ARTHRALGIA [None]
  - ERYTHEMA NODOSUM [None]
  - LUPUS-LIKE SYNDROME [None]
  - SWELLING [None]
  - URTICARIA [None]
